FAERS Safety Report 7177918-2 (Version None)
Quarter: 2010Q4

REPORT INFORMATION
  Report Type: 
  Country: None (occurrence: None)
  Receive Date: 20101220
  Receipt Date: 20101210
  Transmission Date: 20110411
  Serious: Yes (Hospitalization)
  Sender: FDA-Public Use
  Company Number: FI-ASTRAZENECA-2010SE59131

PATIENT
  Age: 26 Year
  Sex: Female

DRUGS (3)
  1. SEROQUEL XR [Suspect]
     Indication: SCHIZOPHRENIA, PARANOID TYPE
     Route: 048
     Dates: start: 20081203
  2. SEROQUEL XR [Suspect]
     Route: 048
     Dates: end: 20100112
  3. KETIPINOR [Concomitant]
     Dates: end: 20100112

REACTIONS (1)
  - LEUKOPENIA [None]
